FAERS Safety Report 6414924-7 (Version None)
Quarter: 2009Q4

REPORT INFORMATION
  Report Type: 
  Country: None (occurrence: None)
  Receive Date: 20091026
  Receipt Date: 20090513
  Transmission Date: 20100525
  Serious: No
  Sender: FDA-Public Use
  Company Number: US-ABBOTT-09P-163-0572868-00

PATIENT
  Sex: Female
  Weight: 53.118 kg

DRUGS (2)
  1. LUPRON DEPOT [Suspect]
     Indication: UTERINE LEIOMYOMA
     Route: 050
     Dates: start: 20090327
  2. UNKNOWN BIRTH CONTROL PILL [Concomitant]
     Indication: UTERINE LEIOMYOMA
     Route: 048

REACTIONS (2)
  - FEELING COLD [None]
  - PYREXIA [None]
